FAERS Safety Report 9968865 (Version 1)
Quarter: 2014Q1

REPORT INFORMATION
  Report Type: Report from Study
  Country: US (occurrence: US)
  Receive Date: 20140306
  Receipt Date: 20140306
  Transmission Date: 20141002
  Serious: No
  Sender: FDA-Public Use
  Company Number: US-ABBVIE-13P-163-1142259-00

PATIENT
  Sex: Female
  Weight: 81.72 kg

DRUGS (12)
  1. HUMIRA [Suspect]
     Indication: PSORIATIC ARTHROPATHY
     Dates: start: 201301, end: 201301
  2. HUMIRA [Suspect]
     Indication: PSORIASIS
     Dates: start: 201301, end: 20130830
  3. CELEBREX [Concomitant]
     Indication: ARTHRITIS
  4. CRESTOR [Concomitant]
     Indication: BLOOD CHOLESTEROL
  5. LEXAPRO [Concomitant]
     Indication: DEPRESSION
  6. LISINOPRIL [Concomitant]
     Indication: HYPERTENSION
  7. METFORMIN [Concomitant]
     Indication: METABOLIC SYNDROME
  8. NEXIUM [Concomitant]
     Indication: GASTROOESOPHAGEAL REFLUX DISEASE
  9. PROGESTERONE [Concomitant]
     Indication: HORMONE REPLACEMENT THERAPY
  10. RESTASIS [Concomitant]
     Indication: DRY EYE
  11. SYNTHROID [Concomitant]
     Indication: HYPOTHYROIDISM
  12. WELLBUTRIN [Concomitant]
     Indication: DEPRESSION

REACTIONS (6)
  - Guttate psoriasis [Not Recovered/Not Resolved]
  - Injection site rash [Not Recovered/Not Resolved]
  - Psoriasis [Not Recovered/Not Resolved]
  - Pain [Not Recovered/Not Resolved]
  - Injection site rash [Not Recovered/Not Resolved]
  - Rash pruritic [Not Recovered/Not Resolved]
